FAERS Safety Report 18309213 (Version 1)
Quarter: 2020Q3

REPORT INFORMATION
  Report Type: Spontaneous
  Country: US (occurrence: US)
  Receive Date: 20200924
  Receipt Date: 20200924
  Transmission Date: 20201103
  Serious: No
  Sender: FDA-Public Use
  Company Number: NVSC2020US260560

PATIENT
  Sex: Male
  Weight: 81.65 kg

DRUGS (1)
  1. XIIDRA [Suspect]
     Active Substance: LIFITEGRAST
     Indication: DRY EYE
     Dosage: UNK (DROP)
     Route: 047
     Dates: start: 201912

REACTIONS (2)
  - Eyelid rash [Unknown]
  - Eyelids pruritus [Unknown]
